FAERS Safety Report 7608594-X (Version None)
Quarter: 2011Q3

REPORT INFORMATION
  Report Type: 
  Country: None (occurrence: None)
  Receive Date: 20110714
  Receipt Date: 20110701
  Transmission Date: 20111222
  Serious: Yes (Hospitalization)
  Sender: FDA-Public Use
  Company Number: PHHY2011FR55499

PATIENT
  Sex: Male

DRUGS (8)
  1. DILTIAZEM HYDROCHLORIDE [Suspect]
     Indication: HYPERTENSION
     Dosage: 120 MG, BID
     Dates: start: 19950703, end: 20110606
  2. LEVOTHYROXINE SODIUM [Concomitant]
     Indication: THYROID DISORDER
     Dosage: 50 MG, UNK
     Route: 048
     Dates: start: 19980101
  3. ALLOPURINOL [Concomitant]
     Indication: HYPERURICAEMIA
     Dosage: 200 MG DAILY, UNK
     Dates: start: 19980101
  4. RASILEZ [Suspect]
     Indication: HYPERTENSION
     Dosage: 150 MG, QD
     Dates: start: 20090831
  5. DILTIAZEM HYDROCHLORIDE [Suspect]
     Indication: TACHYCARDIA
  6. LASIX [Concomitant]
     Indication: CARDIAC FAILURE
     Dosage: 20 MG DAILY, UNK
     Dates: start: 19950101
  7. RASILEZ [Suspect]
     Dosage: 300 MG, QD
  8. COUMADIN [Concomitant]
     Indication: ATRIAL FIBRILLATION
     Dosage: 5 MG, UNK
     Route: 048
     Dates: start: 19950101

REACTIONS (2)
  - ATRIAL FIBRILLATION [None]
  - BRADYCARDIA [None]
